FAERS Safety Report 17847563 (Version 1)
Quarter: 2020Q2

REPORT INFORMATION
  Report Type: Spontaneous
  Country: US (occurrence: US)
  Receive Date: 20200601
  Receipt Date: 20200601
  Transmission Date: 20200714
  Serious: Yes (Other)
  Sender: FDA-Public Use
  Company Number: US-GLAXOSMITHKLINE-US2020089361

PATIENT
  Age: 56 Year
  Sex: Female

DRUGS (1)
  1. EXCEDRIN MIGRAINE [Suspect]
     Active Substance: ACETAMINOPHEN\ASPIRIN\CAFFEINE
     Indication: MIGRAINE
     Dosage: UNK,(I WAS TAKING MORE THAN 2 A DAY)

REACTIONS (8)
  - Pain [Unknown]
  - Nervousness [Unknown]
  - Labelled drug-food interaction medication error [Unknown]
  - Migraine [Unknown]
  - Extra dose administered [Unknown]
  - Feeling of despair [Unknown]
  - Drug dependence [Unknown]
  - Headache [Unknown]
